FAERS Safety Report 8249060-0 (Version None)
Quarter: 2012Q1

REPORT INFORMATION
  Report Type: 
  Country: None (occurrence: None)
  Receive Date: 20120327
  Receipt Date: 20120316
  Transmission Date: 20120608
  Serious: Yes (Hospitalization)
  Sender: FDA-Public Use
  Company Number: IMP_05779_2012

PATIENT
  Age: 54 Year
  Sex: Male

DRUGS (3)
  1. PERINDOPRIL/INDAPAMIDE [Concomitant]
  2. FENOFIBRATE [Suspect]
     Indication: HYPERCHOLESTEROLAEMIA
     Dosage: (DF)
  3. SIMVASTATIN [Concomitant]

REACTIONS (11)
  - EOSINOPHILIA [None]
  - PYREXIA [None]
  - ALANINE AMINOTRANSFERASE INCREASED [None]
  - ECZEMA [None]
  - HYPERBILIRUBINAEMIA [None]
  - RASH MACULO-PAPULAR [None]
  - LIVER DISORDER [None]
  - DRUG RASH WITH EOSINOPHILIA AND SYSTEMIC SYMPTOMS [None]
  - SWELLING FACE [None]
  - COUGH [None]
  - GAMMA-GLUTAMYLTRANSFERASE INCREASED [None]
